FAERS Safety Report 11046200 (Version 1)
Quarter: 2015Q2

REPORT INFORMATION
  Report Type: Spontaneous
  Country: US (occurrence: US)
  Receive Date: 20150418
  Receipt Date: 20150418
  Transmission Date: 20150821
  Serious: Yes (Other)
  Sender: FDA-Public Use
  Company Number: US-AUROBINDO-AUR-APL-2015-03374

PATIENT
  Age: 69 Year
  Sex: Female
  Weight: 75 kg

DRUGS (10)
  1. CELEBREX [Suspect]
     Active Substance: CELECOXIB
     Indication: SCOLIOSIS
     Dosage: 100 MG, TWO TIMES A DAY
     Route: 048
     Dates: start: 2013
  2. CELEBREX [Suspect]
     Active Substance: CELECOXIB
     Indication: SHUNT STENOSIS
  3. FENTANYL. [Concomitant]
     Active Substance: FENTANYL
     Indication: PRODUCT USED FOR UNKNOWN INDICATION
     Dosage: 25 MG, ONCE EVERY THREE DAYS
     Route: 065
  4. NORVASC [Suspect]
     Active Substance: AMLODIPINE BESYLATE
     Indication: PRODUCT USED FOR UNKNOWN INDICATION
     Dosage: UNK
     Route: 065
  5. CELEBREX [Suspect]
     Active Substance: CELECOXIB
     Indication: FIBROMYALGIA
  6. FINASTERIDE. [Suspect]
     Active Substance: FINASTERIDE
     Indication: BLOOD PRESSURE
     Dosage: UNK
     Route: 065
  7. SAVELLA [Concomitant]
     Active Substance: MILNACIPRAN HYDROCHLORIDE
     Indication: BACK DISORDER
     Dosage: UNK
     Route: 065
  8. CELEBREX [Suspect]
     Active Substance: CELECOXIB
     Indication: ARTHRITIS
  9. CELEBREX [Suspect]
     Active Substance: CELECOXIB
     Indication: OSTEOARTHRITIS
  10. VALSARTAN. [Suspect]
     Active Substance: VALSARTAN
     Indication: PRODUCT USED FOR UNKNOWN INDICATION
     Dosage: UNK
     Route: 065

REACTIONS (3)
  - Hypertension [Not Recovered/Not Resolved]
  - Condition aggravated [Not Recovered/Not Resolved]
  - Drug ineffective [Not Recovered/Not Resolved]

NARRATIVE: CASE EVENT DATE: 2015
